FAERS Safety Report 23330879 (Version 1)
Quarter: 2023Q4

REPORT INFORMATION
  Report Type: Spontaneous
  Country: TR (occurrence: TR)
  Receive Date: 20231222
  Receipt Date: 20231222
  Transmission Date: 20240110
  Serious: Yes (Hospitalization)
  Sender: FDA-Public Use
  Company Number: TR-ABBVIE-5551469

PATIENT
  Age: 28 Year
  Sex: Female

DRUGS (1)
  1. BOTULINUM TOXIN TYPE A [Suspect]
     Active Substance: BOTULINUM TOXIN TYPE A
     Indication: Hyperhidrosis
     Dosage: TIME INTERVAL: AS NECESSARY: DOSE: 200 UNITS
     Route: 065

REACTIONS (10)
  - Botulism [Recovering/Resolving]
  - Feeding disorder [Recovering/Resolving]
  - Eye disorder [Recovering/Resolving]
  - Muscular weakness [Recovering/Resolving]
  - Dysphagia [Not Recovered/Not Resolved]
  - Off label use [Recovered/Resolved]
  - Diplopia [Recovering/Resolving]
  - Dysphonia [Recovering/Resolving]
  - Eyelid ptosis [Recovering/Resolving]
  - Visual impairment [Recovering/Resolving]
